FAERS Safety Report 7013843-5 (Version None)
Quarter: 2010Q3

REPORT INFORMATION
  Report Type: 
  Country: None (occurrence: None)
  Receive Date: 20100924
  Receipt Date: 20100915
  Transmission Date: 20110219
  Serious: Yes (Other)
  Sender: FDA-Public Use
  Company Number: US-SANOFI-AVENTIS-2010SA056011

PATIENT
  Age: 72 Year
  Sex: Male

DRUGS (3)
  1. PLAVIX [Suspect]
     Dosage: QUARTER OF A TABLET ONCE DAILY
     Route: 048
  2. PLAVIX [Suspect]
     Route: 048
  3. ASPIRIN [Concomitant]

REACTIONS (2)
  - CAROTID ARTERY OCCLUSION [None]
  - INCORRECT DOSE ADMINISTERED [None]
